FAERS Safety Report 7202774-3 (Version None)
Quarter: 2010Q4

REPORT INFORMATION
  Report Type: 
  Country: None (occurrence: None)
  Receive Date: 20101220
  Receipt Date: 20101213
  Transmission Date: 20110411
  Serious: Yes (Hospitalization, Other)
  Sender: FDA-Public Use
  Company Number: 2010SP025234

PATIENT
  Age: 27 Year
  Sex: Female
  Weight: 81.6475 kg

DRUGS (2)
  1. NUVARING [Suspect]
     Indication: CONTRACEPTION
     Dosage: 1 DF; QM; VAG
     Route: 067
     Dates: start: 20081001, end: 20090515
  2. PENICILLIN [Suspect]
     Indication: PHARYNGITIS STREPTOCOCCAL

REACTIONS (9)
  - DEEP VEIN THROMBOSIS [None]
  - DEPRESSION [None]
  - ESCHERICHIA URINARY TRACT INFECTION [None]
  - INTERNATIONAL NORMALISED RATIO DECREASED [None]
  - IRON DEFICIENCY [None]
  - MULTIPLE INJURIES [None]
  - POST THROMBOTIC SYNDROME [None]
  - VENA CAVA THROMBOSIS [None]
  - WEIGHT DECREASED [None]
